FAERS Safety Report 8150190-2 (Version None)
Quarter: 2012Q1

REPORT INFORMATION
  Report Type: 
  Country: None (occurrence: None)
  Receive Date: 20120220
  Receipt Date: 20120214
  Transmission Date: 20120608
  Serious: Yes (Other)
  Sender: FDA-Public Use
  Company Number: US-PFIZER INC-2012040266

PATIENT
  Sex: Female
  Weight: 69.841 kg

DRUGS (7)
  1. DIOVAN [Concomitant]
     Indication: HYPERTENSION
     Dosage: UNK
  2. FLAGYL [Suspect]
     Indication: FOOD POISONING
     Dosage: 500 MG, 3X/DAY
     Route: 048
     Dates: start: 20111128, end: 20111201
  3. FLAGYL [Suspect]
     Indication: CLOSTRIDIAL INFECTION
     Dosage: UNK
     Route: 048
     Dates: start: 20120101, end: 20120131
  4. PREDNISONE [Concomitant]
     Indication: SYSTEMIC LUPUS ERYTHEMATOSUS
     Dosage: 5 MG, UNK
  5. LIPITOR [Concomitant]
     Indication: BLOOD CHOLESTEROL INCREASED
     Dosage: 40 MG, UNK
  6. CIPROFLOXACIN [Concomitant]
     Indication: FOOD POISONING
     Dosage: UNK
  7. HYDROXYCHLOROQUINE [Concomitant]
     Indication: SYSTEMIC LUPUS ERYTHEMATOSUS
     Dosage: UNK

REACTIONS (5)
  - DRUG INEFFECTIVE [None]
  - WEIGHT DECREASED [None]
  - DIARRHOEA [None]
  - MUSCLE SPASMS [None]
  - CLOSTRIDIAL INFECTION [None]
